FAERS Safety Report 8963460 (Version 1)
Quarter: 2012Q4

REPORT INFORMATION
  Report Type: 
  Country: US (occurrence: US)
  Receive Date: 20121214
  Receipt Date: 20121214
  Transmission Date: 20130627
  Serious: No
  Sender: FDA-Public Use
  Company Number: US-BIOGENIDEC-2012BI059003

PATIENT
  Sex: Female

DRUGS (1)
  1. TYSABRI [Suspect]
     Indication: MULTIPLE SCLEROSIS
     Route: 042
     Dates: start: 20091211, end: 20120717

REACTIONS (9)
  - Contusion [Recovered/Resolved]
  - Confusional state [Unknown]
  - Paranoia [Unknown]
  - Gait disturbance [Unknown]
  - Diplopia [Unknown]
  - Vertigo [Unknown]
  - Asthenia [Unknown]
  - Headache [Unknown]
  - Rash [Recovered/Resolved]
